FAERS Safety Report 24432650 (Version 1)
Quarter: 2024Q4

REPORT INFORMATION
  Report Type: Spontaneous
  Country: CN (occurrence: CN)
  Receive Date: 20241014
  Receipt Date: 20241014
  Transmission Date: 20250115
  Serious: Yes (Other)
  Sender: PFIZER
  Company Number: CN-PFIZER INC-PV202400131328

PATIENT
  Age: 54 Year
  Sex: Male
  Weight: 70 kg

DRUGS (1)
  1. VORICONAZOLE [Suspect]
     Active Substance: VORICONAZOLE
     Indication: Pneumonia fungal
     Dosage: 280 MG, 2X/DAY
     Route: 041
     Dates: start: 20240814, end: 20240826

REACTIONS (3)
  - Visual impairment [Recovered/Resolved]
  - Chloropsia [Recovered/Resolved]
  - Xanthopsia [Recovered/Resolved]

NARRATIVE: CASE EVENT DATE: 20240816
